FAERS Safety Report 21036956 (Version 3)
Quarter: 2022Q3

REPORT INFORMATION
  Report Type: Report from Study
  Country: US (occurrence: US)
  Receive Date: 20220702
  Receipt Date: 20220926
  Transmission Date: 20221027
  Serious: No
  Sender: FDA-Public Use
  Company Number: US-NOVARTISTESTPH-NVSC2022US150762

PATIENT
  Sex: Female

DRUGS (1)
  1. KESIMPTA [Suspect]
     Active Substance: OFATUMUMAB
     Indication: Relapsing multiple sclerosis
     Dosage: UNK, QMO
     Route: 058
     Dates: start: 20210709

REACTIONS (9)
  - Influenza like illness [Unknown]
  - Chills [Unknown]
  - Asthenia [Unknown]
  - Pain [Unknown]
  - Myalgia [Unknown]
  - Malaise [Unknown]
  - Fatigue [Unknown]
  - Blood iron decreased [Recovering/Resolving]
  - SARS-CoV-2 test positive [Unknown]
